FAERS Safety Report 5203475-3 (Version None)
Quarter: 2007Q1

REPORT INFORMATION
  Report Type: 
  Country: None (occurrence: None)
  Receive Date: 20070105
  Receipt Date: 20061227
  Transmission Date: 20070707
  Serious: Yes (Life-Threatening, Hospitalization)
  Sender: FDA-Public Use
  Company Number: 2006-03279

PATIENT
  Age: 76 Year
  Sex: Female
  Weight: 65 kg

DRUGS (3)
  1. VELCADE [Suspect]
     Indication: MULTIPLE MYELOMA
     Dosage: 2.20 MG, INTRAVENOUS
     Route: 042
     Dates: start: 20061211
  2. DEXAMETHASONE [Suspect]
     Indication: MULTIPLE MYELOMA
     Dosage: 20.00 MG, ORAL
     Route: 048
     Dates: start: 20061211
  3. MS CONTIN [Concomitant]

REACTIONS (18)
  - ARRHYTHMIA SUPRAVENTRICULAR [None]
  - ATRIAL FIBRILLATION [None]
  - CARDIAC FAILURE [None]
  - CONDITION AGGRAVATED [None]
  - CONFUSIONAL STATE [None]
  - CONSTIPATION [None]
  - DIARRHOEA [None]
  - DYSPNOEA [None]
  - FATIGUE [None]
  - LOWER RESPIRATORY TRACT INFECTION [None]
  - MUCOSAL INFLAMMATION [None]
  - MUSCULAR WEAKNESS [None]
  - MYOCARDIAL ISCHAEMIA [None]
  - NAUSEA [None]
  - NEURALGIA [None]
  - RENAL FAILURE CHRONIC [None]
  - TUMOUR LYSIS SYNDROME [None]
  - VOMITING [None]
